FAERS Safety Report 11754083 (Version 1)
Quarter: 2015Q4

REPORT INFORMATION
  Report Type: Spontaneous
  Country: US (occurrence: US)
  Receive Date: 20151119
  Receipt Date: 20151119
  Transmission Date: 20160304
  Serious: No
  Sender: FDA-Public Use
  Company Number: US-BAYER-2015-469607

PATIENT
  Age: 82 Year
  Sex: Male
  Weight: 68.27 kg

DRUGS (2)
  1. AFINITOR [Concomitant]
     Active Substance: EVEROLIMUS
  2. MIRALAX [Suspect]
     Active Substance: POLYETHYLENE GLYCOL 3350
     Indication: INTESTINAL OBSTRUCTION
     Dosage: 1 DF, OTHER FREQUENCY
     Route: 048
     Dates: start: 20151110

REACTIONS (2)
  - Product use issue [None]
  - Product use issue [None]

NARRATIVE: CASE EVENT DATE: 20151112
